FAERS Safety Report 5942246-7 (Version None)
Quarter: 2008Q4

REPORT INFORMATION
  Report Type: 
  Country: None (occurrence: None)
  Receive Date: 20081105
  Receipt Date: 20081029
  Transmission Date: 20090506
  Serious: Yes (Other)
  Sender: FDA-Public Use
  Company Number: US-JNJCH-2008053581

PATIENT
  Age: 60 Year
  Sex: Female
  Weight: 117 kg

DRUGS (1)
  1. ZYRTEC [Suspect]
     Indication: HYPERSENSITIVITY
     Route: 048

REACTIONS (2)
  - ACCIDENTAL OVERDOSE [None]
  - DYSPHAGIA [None]
